FAERS Safety Report 25007025 (Version 3)
Quarter: 2025Q3

REPORT INFORMATION
  Report Type: Spontaneous
  Country: CA (occurrence: CA)
  Receive Date: 20250225
  Receipt Date: 20250718
  Transmission Date: 20251021
  Serious: Yes (Hospitalization, Other)
  Sender: DR REDDYS
  Company Number: None

PATIENT
  Age: 77 Year
  Sex: Female

DRUGS (21)
  1. AZACITIDINE [Suspect]
     Active Substance: AZACITIDINE
     Indication: Acute myeloid leukaemia
  2. AZACITIDINE [Suspect]
     Active Substance: AZACITIDINE
  3. AZACITIDINE [Suspect]
     Active Substance: AZACITIDINE
  4. AZACITIDINE [Suspect]
     Active Substance: AZACITIDINE
  5. AZACITIDINE [Suspect]
     Active Substance: AZACITIDINE
  6. AZACITIDINE [Suspect]
     Active Substance: AZACITIDINE
  7. AZACITIDINE [Suspect]
     Active Substance: AZACITIDINE
  8. AZACITIDINE [Suspect]
     Active Substance: AZACITIDINE
  9. AZACITIDINE [Suspect]
     Active Substance: AZACITIDINE
  10. VENETOCLAX [Suspect]
     Active Substance: VENETOCLAX
     Indication: Acute myeloid leukaemia
     Route: 048
  11. VENETOCLAX [Suspect]
     Active Substance: VENETOCLAX
     Route: 048
  12. VENETOCLAX [Suspect]
     Active Substance: VENETOCLAX
     Route: 048
  13. VENETOCLAX [Suspect]
     Active Substance: VENETOCLAX
     Route: 048
  14. VENETOCLAX [Suspect]
     Active Substance: VENETOCLAX
     Route: 048
  15. VENETOCLAX [Suspect]
     Active Substance: VENETOCLAX
     Route: 048
  16. VENETOCLAX [Suspect]
     Active Substance: VENETOCLAX
     Route: 048
  17. VENETOCLAX [Suspect]
     Active Substance: VENETOCLAX
     Route: 048
  18. VENETOCLAX [Suspect]
     Active Substance: VENETOCLAX
     Route: 048
  19. VENETOCLAX [Suspect]
     Active Substance: VENETOCLAX
     Route: 048
  20. VENETOCLAX [Suspect]
     Active Substance: VENETOCLAX
     Route: 048
  21. COVID-19 VACCINE MRNA [Concomitant]
     Indication: COVID-19 prophylaxis
     Route: 030

REACTIONS (1)
  - Syncope [Not Recovered/Not Resolved]
